FAERS Safety Report 21973196 (Version 1)
Quarter: 2023Q1

REPORT INFORMATION
  Report Type: Report from Study
  Country: MX (occurrence: MX)
  Receive Date: 20230209
  Receipt Date: 20230209
  Transmission Date: 20230418
  Serious: Yes (Hospitalization, Other)
  Sender: FDA-Public Use
  Company Number: MX-002147023-NVSC2023MX027091

PATIENT
  Sex: Male
  Weight: 70 kg

DRUGS (4)
  1. EXFORGE HCT [Suspect]
     Active Substance: AMLODIPINE BESYLATE\HYDROCHLOROTHIAZIDE\VALSARTAN
     Indication: Blood pressure increased
     Dosage: 1 DOSAGE FORM, QD (5/160/12.5 MG) 8 YEARS AGO APPROXIMAT ELY
     Route: 048
  2. EXFORGE HCT [Suspect]
     Active Substance: AMLODIPINE BESYLATE\HYDROCHLOROTHIAZIDE\VALSARTAN
     Dosage: 0.5 DOSAGE FORM, QD (5/160/12.5 MG)
     Route: 048
  3. METFORMIN HYDROCHLORIDE\VILDAGLIPTIN [Suspect]
     Active Substance: METFORMIN HYDROCHLORIDE\VILDAGLIPTIN
     Indication: Metabolic syndrome
     Dosage: 1 DOSAGE FORM, QD (50/850 MG) 8 YEARS AGO APPROXIMATELY
     Route: 048
  4. METFORMIN HYDROCHLORIDE\VILDAGLIPTIN [Suspect]
     Active Substance: METFORMIN HYDROCHLORIDE\VILDAGLIPTIN
     Dosage: 1 DOSAGE FORM, QD (50/850 MG) 8 YEARS AGO APPROXIMATELY, IN THE MORNING AND AT NIGHT
     Route: 048

REACTIONS (9)
  - Retinal detachment [Unknown]
  - Syncope [Unknown]
  - Cataract [Unknown]
  - Blood pressure decreased [Recovering/Resolving]
  - Fatigue [Unknown]
  - Yawning [Unknown]
  - Intraocular pressure increased [Unknown]
  - Product use in unapproved indication [Unknown]
  - Off label use [Not Recovered/Not Resolved]
